FAERS Safety Report 4648668-9 (Version None)
Quarter: 2005Q2

REPORT INFORMATION
  Report Type: 
  Country: None (occurrence: None)
  Receive Date: 20050427
  Receipt Date: 20050418
  Transmission Date: 20051028
  Serious: Yes (Hospitalization)
  Sender: FDA-Public Use
  Company Number: 2005-127561-NL

PATIENT
  Age: 76 Year
  Sex: Male

DRUGS (3)
  1. MIRTAZAPINE [Suspect]
     Indication: DEPRESSION
     Dosage: DF; ORAL
     Route: 048
     Dates: start: 20040923, end: 20041017
  2. RAMIPRIL [Concomitant]
  3. FUROSEMIDE [Concomitant]

REACTIONS (4)
  - AMMONIA [None]
  - DIZZINESS [None]
  - POISONING [None]
  - VISION BLURRED [None]
